FAERS Safety Report 23634935 (Version 2)
Quarter: 2024Q2

REPORT INFORMATION
  Report Type: Spontaneous
  Country: US (occurrence: US)
  Receive Date: 20240315
  Receipt Date: 20240405
  Transmission Date: 20240716
  Serious: Yes (Death, Hospitalization)
  Sender: FDA-Public Use
  Company Number: US-TEVA-VS-3169436

PATIENT
  Age: 74 Year
  Sex: Female

DRUGS (2)
  1. GEMCITABINE [Suspect]
     Active Substance: GEMCITABINE
     Indication: Adenocarcinoma pancreas
     Route: 065
  2. ECULIZUMAB [Suspect]
     Active Substance: ECULIZUMAB
     Indication: Thrombotic microangiopathy
     Route: 065

REACTIONS (6)
  - Thrombotic microangiopathy [Fatal]
  - Renal impairment [Unknown]
  - Drug ineffective [Fatal]
  - Respiratory distress [Unknown]
  - Septic shock [Fatal]
  - Hypervolaemia [Unknown]
